FAERS Safety Report 14167553 (Version 3)
Quarter: 2018Q3

REPORT INFORMATION
  Report Type: Report from Study
  Country: JP (occurrence: JP)
  Receive Date: 20171107
  Receipt Date: 20180801
  Transmission Date: 20181010
  Serious: Yes (Hospitalization)
  Sender: FDA-Public Use
  Company Number: JP-ELI_LILLY_AND_COMPANY-JP201710011851

PATIENT
  Age: 86 Year
  Sex: Female
  Weight: 64 kg

DRUGS (55)
  1. BAYASPIRIN [Concomitant]
     Active Substance: ASPIRIN
     Dosage: 100MG/DAY
     Route: 048
     Dates: end: 20180228
  2. NICORANDIL [Concomitant]
     Active Substance: NICORANDIL
     Dosage: UNK
     Route: 048
     Dates: end: 20170809
  3. ROSUVASTATIN                       /01588602/ [Concomitant]
     Active Substance: ROSUVASTATIN CALCIUM
     Dosage: UNK
     Route: 048
  4. LOXONIN [Concomitant]
     Active Substance: LOXOPROFEN SODIUM
     Dosage: UNK
     Route: 050
  5. BAYASPIRIN [Concomitant]
     Active Substance: ASPIRIN
     Dosage: 100MG/DAY
     Route: 048
  6. HEPARIN [Concomitant]
     Active Substance: HEPARIN SODIUM
     Dosage: 5000 IU, UNK
     Route: 065
  7. PRAVASTATIN                        /00880402/ [Concomitant]
     Active Substance: PRAVASTATIN SODIUM
     Dosage: UNK
     Route: 048
  8. FAMOTIDINE. [Concomitant]
     Active Substance: FAMOTIDINE
     Dosage: UNK
     Route: 048
  9. ARTIST [Concomitant]
     Active Substance: CARVEDILOL
     Dosage: UNK
     Route: 048
     Dates: start: 20170809
  10. NEXIUM [Concomitant]
     Active Substance: ESOMEPRAZOLE MAGNESIUM
     Dosage: UNK
     Dates: start: 20170808
  11. GASLON [Concomitant]
     Active Substance: IRSOGLADINE MALEATE
     Dosage: UNK
     Route: 048
     Dates: end: 20170809
  12. MAINTATE [Concomitant]
     Active Substance: BISOPROLOL FUMARATE
     Dosage: UNK
     Route: 048
  13. MAINTATE [Concomitant]
     Active Substance: BISOPROLOL FUMARATE
     Dosage: UNK
     Route: 048
     Dates: end: 20170903
  14. FUROSEMIDE. [Concomitant]
     Active Substance: FUROSEMIDE
     Dosage: UNK
     Route: 048
  15. OHNES SP [Concomitant]
     Dosage: UNK
     Route: 048
     Dates: end: 20170809
  16. SPIRONOLACTONE. [Concomitant]
     Active Substance: SPIRONOLACTONE
     Dosage: UNK
     Route: 048
     Dates: start: 20170808, end: 20170820
  17. NEXIUM [Concomitant]
     Active Substance: ESOMEPRAZOLE MAGNESIUM
     Dosage: UNK
     Route: 048
     Dates: start: 20170808, end: 20180228
  18. LIXIANA [Concomitant]
     Active Substance: EDOXABAN TOSYLATE
     Dosage: UNK
     Route: 048
     Dates: start: 20170810
  19. PRASUGREL HYDROCHLORIDE [Suspect]
     Active Substance: PRASUGREL HYDROCHLORIDE
     Indication: MYOCARDIAL ISCHAEMIA
     Dosage: 3.75 MG, DAILY
     Route: 048
  20. NICORANDIL [Concomitant]
     Active Substance: NICORANDIL
     Dosage: UNK
     Route: 048
  21. REBAMIPIDE [Concomitant]
     Active Substance: REBAMIPIDE
     Dosage: UNK
     Route: 048
     Dates: end: 20170809
  22. CANDESARTAN                        /01349502/ [Concomitant]
     Active Substance: CANDESARTAN
     Dosage: UNK
     Route: 048
     Dates: end: 20170809
  23. AMLODIPINE                         /00972402/ [Concomitant]
     Active Substance: AMLODIPINE BESYLATE
     Dosage: UNK
     Route: 048
  24. AMLODIPINE                         /00972402/ [Concomitant]
     Active Substance: AMLODIPINE BESYLATE
     Dosage: UNK
     Route: 048
     Dates: end: 20170809
  25. BETAHISTINE                        /00141803/ [Concomitant]
     Dosage: UNK
     Route: 048
  26. BETAHISTINE                        /00141803/ [Concomitant]
     Dosage: UNK
     Route: 048
     Dates: end: 20170809
  27. TOPILORIC [Concomitant]
     Active Substance: TOPIROXOSTAT
     Dosage: UNK
     Route: 048
     Dates: end: 20170809
  28. CRESTOR OD [Concomitant]
     Active Substance: ROSUVASTATIN CALCIUM
     Dosage: UNK
     Route: 048
     Dates: start: 20170808
  29. SPIRONOLACTONE. [Concomitant]
     Active Substance: SPIRONOLACTONE
     Dosage: UNK
     Route: 048
     Dates: start: 20180301
  30. MOHRUS L [Concomitant]
     Active Substance: KETOPROFEN
     Dosage: UNK
     Route: 050
     Dates: start: 20170810
  31. LIXIANA [Concomitant]
     Active Substance: EDOXABAN TOSYLATE
     Dosage: 30MG/DAY
     Route: 048
     Dates: start: 20170810, end: 20170810
  32. HEPARIN [Concomitant]
     Active Substance: HEPARIN SODIUM
     Dosage: 3000 IU, UNK
     Route: 065
  33. MAINTATE [Concomitant]
     Active Substance: BISOPROLOL FUMARATE
     Dosage: UNK
     Route: 048
     Dates: end: 20170809
  34. GASLON [Concomitant]
     Active Substance: IRSOGLADINE MALEATE
     Dosage: UNK
     Route: 048
  35. OHNES SP [Concomitant]
     Dosage: UNK
     Route: 048
  36. LASIX [Concomitant]
     Active Substance: FUROSEMIDE
     Dosage: UNK
     Dates: start: 20170808
  37. BISOPROLOL                         /00802602/ [Concomitant]
     Active Substance: BISOPROLOL
     Dosage: UNK
     Route: 048
  38. FEBURIC [Concomitant]
     Active Substance: FEBUXOSTAT
     Dosage: UNK
     Route: 048
     Dates: start: 20170808
  39. ARTIST [Concomitant]
     Active Substance: CARVEDILOL
     Dosage: UNK
     Route: 048
     Dates: start: 20170809, end: 20170911
  40. CARVEDILOL. [Concomitant]
     Active Substance: CARVEDILOL
     Dosage: UNK
     Route: 048
  41. NICORANDIL [Concomitant]
     Active Substance: NICORANDIL
     Dosage: UNK
     Route: 048
     Dates: end: 20170903
  42. PRAVASTATIN                        /00880402/ [Concomitant]
     Active Substance: PRAVASTATIN SODIUM
     Dosage: UNK
     Route: 048
     Dates: end: 20170809
  43. TOPILORIC [Concomitant]
     Active Substance: TOPIROXOSTAT
     Dosage: UNK
     Route: 048
  44. SPIRONOLACTONE. [Concomitant]
     Active Substance: SPIRONOLACTONE
     Dosage: UNK
     Route: 048
     Dates: start: 20170808
  45. TAKELDA [Concomitant]
     Active Substance: ASPIRIN\LANSOPRAZOLE
     Dosage: UNK
     Route: 048
     Dates: start: 20180301
  46. REBAMIPIDE [Concomitant]
     Active Substance: REBAMIPIDE
     Dosage: UNK
     Route: 048
  47. FAMOTIDINE. [Concomitant]
     Active Substance: FAMOTIDINE
     Dosage: UNK
     Route: 048
     Dates: end: 20170809
  48. CANDESARTAN                        /01349502/ [Concomitant]
     Active Substance: CANDESARTAN
     Dosage: UNK
     Route: 048
  49. LOXOPROFEN                         /00890702/ [Concomitant]
     Active Substance: LOXOPROFEN
     Dosage: UNK
     Route: 048
  50. MOHRUS L [Concomitant]
     Active Substance: KETOPROFEN
     Dosage: UNK
     Route: 050
     Dates: start: 20170810, end: 20170824
  51. PRAZAXA [Concomitant]
     Active Substance: DABIGATRAN ETEXILATE MESYLATE
     Dosage: UNK
     Route: 048
     Dates: start: 20180301
  52. TELEMINSOFT [Concomitant]
     Active Substance: BISACODYL
     Dosage: UNK
     Route: 050
     Dates: start: 20170831, end: 20170831
  53. LASIX [Concomitant]
     Active Substance: FUROSEMIDE
     Dosage: UNK
     Dates: end: 20170809
  54. LASIX [Concomitant]
     Active Substance: FUROSEMIDE
     Dosage: UNK
     Dates: start: 20170808, end: 20170813
  55. LASIX [Concomitant]
     Active Substance: FUROSEMIDE
     Dosage: UNK
     Dates: start: 20170811, end: 20170816

REACTIONS (8)
  - Thrombotic cerebral infarction [Recovering/Resolving]
  - Cerebral arteriosclerosis [Not Recovered/Not Resolved]
  - Joint swelling [Recovering/Resolving]
  - Herpes zoster [Recovering/Resolving]
  - Chest pain [Recovering/Resolving]
  - Myocardial infarction [Recovering/Resolving]
  - Chondrocalcinosis pyrophosphate [Recovering/Resolving]
  - Arthralgia [Recovering/Resolving]

NARRATIVE: CASE EVENT DATE: 20170808
